FAERS Safety Report 15344190 (Version 1)
Quarter: 2018Q3

REPORT INFORMATION
  Report Type: Spontaneous
  Country: SA (occurrence: SA)
  Receive Date: 20180903
  Receipt Date: 20180903
  Transmission Date: 20181010
  Serious: Yes (Hospitalization)
  Sender: FDA-Public Use
  Company Number: PHHY2018SA080778

PATIENT
  Age: 20 Year
  Sex: Male

DRUGS (1)
  1. METHYLPREDNISOLONE. [Suspect]
     Active Substance: METHYLPREDNISOLONE
     Indication: ACUTE DISSEMINATED ENCEPHALOMYELITIS
     Dosage: 1000 MG, QD
     Route: 065

REACTIONS (4)
  - Familial haemophagocytic lymphohistiocytosis [Unknown]
  - Headache [Recovering/Resolving]
  - Visual impairment [Recovering/Resolving]
  - Product use in unapproved indication [Unknown]
